FAERS Safety Report 13403068 (Version 1)
Quarter: 2017Q2

REPORT INFORMATION
  Report Type: Spontaneous
  Country: US (occurrence: US)
  Receive Date: 20170404
  Receipt Date: 20170404
  Transmission Date: 20170830
  Serious: No
  Sender: FDA-Public Use
  Company Number: US-ROCHE-1849906

PATIENT

DRUGS (1)
  1. AVASTIN [Suspect]
     Active Substance: BEVACIZUMAB
     Indication: LUNG NEOPLASM MALIGNANT
     Dosage: 1050
     Route: 065

REACTIONS (5)
  - Dyspnoea [Unknown]
  - Product quality issue [Unknown]
  - Anxiety [Unknown]
  - Dysphagia [Unknown]
  - Speech disorder [Unknown]
